FAERS Safety Report 8598895-3 (Version None)
Quarter: 2012Q3

REPORT INFORMATION
  Report Type: 
  Country: None (occurrence: None)
  Receive Date: 20120806
  Receipt Date: 20120806
  Transmission Date: 20120928
  Serious: Yes (Other)
  Sender: FDA-Public Use
  Company Number: None

PATIENT
  Age: 43 Year
  Sex: Female
  Weight: 68.0396 kg

DRUGS (1)
  1. SUMATRIPTAN SUCCINATE [Suspect]
     Indication: MIGRAINE
     Dosage: 100 MG 1 TABLET PO
     Route: 048
     Dates: start: 20120801, end: 20120802

REACTIONS (4)
  - DYSPNOEA [None]
  - CHEST PAIN [None]
  - HYPERHIDROSIS [None]
  - HYPOAESTHESIA [None]
